FAERS Safety Report 26088092 (Version 1)
Quarter: 2025Q4

REPORT INFORMATION
  Report Type: Report from Study
  Country: EU (occurrence: EU)
  Receive Date: 20251125
  Receipt Date: 20251125
  Transmission Date: 20260117
  Serious: No
  Sender: TAKEDA
  Company Number: EU-TAKEDA-2024TUS102925

PATIENT
  Age: 70 Year
  Sex: Male

DRUGS (18)
  1. TEDUGLUTIDE [Suspect]
     Active Substance: TEDUGLUTIDE
     Indication: Short-bowel syndrome
     Dosage: 4.6 MILLIGRAM, QD
     Dates: start: 201803
  2. TEDUGLUTIDE [Suspect]
     Active Substance: TEDUGLUTIDE
  3. TEDUGLUTIDE [Suspect]
     Active Substance: TEDUGLUTIDE
  4. TEDUGLUTIDE [Suspect]
     Active Substance: TEDUGLUTIDE
  5. RISANKIZUMAB [Concomitant]
     Active Substance: RISANKIZUMAB
     Indication: Crohn^s disease
     Dosage: 600 MILLIGRAM, QD
     Dates: start: 20240807
  6. COLESEVELAM HYDROCHLORIDE [Concomitant]
     Active Substance: COLESEVELAM HYDROCHLORIDE
     Indication: Hypercholesterolaemia
     Dosage: 625 MILLIGRAM, QD
     Dates: start: 20230307
  7. PANCRELIPASE [Concomitant]
     Active Substance: PANCRELIPASE
     Indication: Crohn^s disease
     Dosage: 40000 MILLIGRAM, QID
     Dates: start: 201901
  8. OXYCODONE [Concomitant]
     Active Substance: OXYCODONE
     Indication: Pain
     Dosage: 10 MILLIGRAM, BID
     Dates: start: 2019
  9. LEVOTHYROXINE SODIUM [Concomitant]
     Active Substance: LEVOTHYROXINE SODIUM
     Indication: Thyroidectomy
     Dosage: 100 MICROGRAM, QD
     Dates: start: 201501
  10. PANTOPRAZOLE SODIUM [Concomitant]
     Active Substance: PANTOPRAZOLE SODIUM
     Indication: Gastrointestinal disorder prophylaxis
     Dosage: 40 MILLIGRAM, QD
     Dates: start: 201912
  11. REMICADE [Concomitant]
     Active Substance: INFLIXIMAB
     Indication: Crohn^s disease
     Dosage: 420 MILLIGRAM, Q8WEEKS
     Dates: start: 20140214
  12. USTEKINUMAB [Concomitant]
     Active Substance: USTEKINUMAB
     Indication: Crohn^s disease
     Dosage: 130 MILLIGRAM, Q8WEEKS
     Dates: start: 20210721
  13. ALPRAZOLAM [Concomitant]
     Active Substance: ALPRAZOLAM
     Indication: Anxiety
     Dosage: 0.5 MILLIGRAM, QD
     Dates: start: 20210621
  14. ESOMEPRAZOLE [Concomitant]
     Active Substance: ESOMEPRAZOLE
     Indication: Prophylaxis
     Dosage: 40 MILLIGRAM, QD
     Dates: start: 20210621
  15. CHOLECALCIFEROL [Concomitant]
     Active Substance: CHOLECALCIFEROL
     Indication: Vitamin D deficiency
     Dosage: 20000 INTERNATIONAL UNIT, QD
     Dates: start: 20220714
  16. Cortison [Concomitant]
     Indication: Back pain
     Dosage: 999 MILLIGRAM, QD
     Dates: start: 20240814
  17. Postericort [Concomitant]
     Indication: Wound
     Dosage: UNK
     Route: 061
  18. CETIRIZINE HYDROCHLORIDE [Concomitant]
     Active Substance: CETIRIZINE HYDROCHLORIDE
     Indication: Drug hypersensitivity
     Dosage: 10 MILLIGRAM

REACTIONS (12)
  - Back pain [Not Recovered/Not Resolved]
  - General physical health deterioration [Not Recovered/Not Resolved]
  - Infection [Recovered/Resolved]
  - Non-cardiac chest pain [Recovered/Resolved]
  - Pseudopolyp [Recovered/Resolved]
  - Salmonella test positive [Recovered/Resolved]
  - Haemorrhoids [Not Recovered/Not Resolved]
  - Herpes zoster [Recovered/Resolved]
  - Serrated polyposis syndrome [Recovered/Resolved]
  - Iron deficiency [Not Recovered/Not Resolved]
  - Pruritus [Not Recovered/Not Resolved]
  - Dyspnoea [Recovered/Resolved]

NARRATIVE: CASE EVENT DATE: 20240101
